FAERS Safety Report 5052452-4 (Version None)
Quarter: 2006Q3

REPORT INFORMATION
  Report Type: 
  Country: None (occurrence: None)
  Receive Date: 20060717
  Receipt Date: 20060202
  Transmission Date: 20061208
  Serious: No
  Sender: FDA-Public Use
  Company Number: US-BRISTOL-MYERS SQUIBB COMPANY-13271259

PATIENT
  Age: 59 Year
  Sex: Female
  Weight: 98 kg

DRUGS (3)
  1. ESTRACE [Suspect]
     Indication: MENOPAUSAL SYMPTOMS
     Route: 048
     Dates: start: 20020101
  2. ZESTRIL [Concomitant]
     Dates: start: 19890101
  3. PROGESTERONE [Concomitant]

REACTIONS (5)
  - ABDOMINAL PAIN UPPER [None]
  - GALLBLADDER DISORDER [None]
  - HEADACHE [None]
  - METRORRHAGIA [None]
  - PAIN [None]
